FAERS Safety Report 8943641 (Version 1)
Quarter: 2012Q4

REPORT INFORMATION
  Report Type: Report from Study
  Country: SE (occurrence: SE)
  Receive Date: 20121203
  Receipt Date: 20121203
  Transmission Date: 20130627
  Serious: Yes (Hospitalization)
  Sender: FDA-Public Use
  Company Number: SE-BAXTER-2012BAX025364

PATIENT
  Age: 47 Year
  Sex: Female
  Weight: 71 kg

DRUGS (13)
  1. SENDOXAN 500 MG PULVER TILL INJEKTIONSV?TSKA, L?SNING [Suspect]
     Indication: BREAST CANCER
     Route: 042
     Dates: start: 20081117, end: 20081208
  2. SENDOXAN 500 MG PULVER TILL INJEKTIONSV?TSKA, L?SNING [Suspect]
     Route: 042
     Dates: start: 20081215
  3. BEVACIZUMAB [Suspect]
     Indication: BREAST CANCER
     Route: 042
     Dates: start: 20081117, end: 20081208
  4. BEVACIZUMAB [Suspect]
     Route: 042
     Dates: start: 20081215
  5. EPIRUBICIN [Suspect]
     Indication: BREAST CANCER
     Route: 042
     Dates: start: 20081117, end: 20081208
  6. EPIRUBICIN [Suspect]
     Route: 042
     Dates: start: 20081215
  7. FLUOROURACIL [Suspect]
     Indication: BREAST CANCER
     Route: 042
     Dates: start: 20081117, end: 20081208
  8. FLUOROURACIL [Suspect]
     Route: 042
     Dates: start: 20081215
  9. PANTOPRAZOLE [Concomitant]
     Indication: DRUG USE FOR UNKNOWN INDICATION
     Route: 065
     Dates: start: 1993
  10. LEVOTHYROXINE [Concomitant]
     Indication: DRUG USE FOR UNKNOWN INDICATION
     Route: 065
     Dates: start: 199412
  11. CETRIZINE [Concomitant]
     Indication: DRUG USE FOR UNKNOWN INDICATION
     Route: 065
     Dates: start: 1986
  12. FILGRASTIM [Concomitant]
     Indication: DRUG USE FOR UNKNOWN INDICATION
     Route: 065
     Dates: start: 20081215
  13. CIPROFLOXACIN [Concomitant]
     Indication: DRUG USE FOR UNKNOWN INDICATION
     Route: 065
     Dates: start: 20081215

REACTIONS (2)
  - Diverticulitis [Recovered/Resolved]
  - Abdominal pain [Unknown]
